FAERS Safety Report 8096835 (Version 3)
Quarter: 2021Q3

REPORT INFORMATION
  Report Type: Spontaneous
  Country: TR (occurrence: TR)
  Receive Date: 20110818
  Receipt Date: 20210709
  Transmission Date: 20211014
  Serious: Yes (Hospitalization, Other)
  Sender: FDA-Public Use
  Company Number: PHHY2011TR51793

PATIENT
  Age: 40 Year
  Sex: Female

DRUGS (6)
  1. METOPROLOL. [Concomitant]
     Active Substance: METOPROLOL
     Indication: PRODUCT USED FOR UNKNOWN INDICATION
     Dosage: UNK
     Route: 065
  2. FLUVASTATIN [Concomitant]
     Active Substance: FLUVASTATIN SODIUM
     Indication: PRODUCT USED FOR UNKNOWN INDICATION
     Dosage: UNK
     Route: 065
  3. ASPIRIN. [Concomitant]
     Active Substance: ASPIRIN
     Indication: PRODUCT USED FOR UNKNOWN INDICATION
     Dosage: UNK
     Route: 065
  4. EVEROLIMUS. [Suspect]
     Active Substance: EVEROLIMUS
     Indication: RENAL TRANSPLANT
     Dosage: UNK
     Route: 065
  5. PREDNISOLONE. [Concomitant]
     Active Substance: PREDNISOLONE
     Indication: PRODUCT USED FOR UNKNOWN INDICATION
     Dosage: UNK
     Route: 065
  6. FAMOTIDINE. [Concomitant]
     Active Substance: FAMOTIDINE
     Indication: PRODUCT USED FOR UNKNOWN INDICATION
     Dosage: UNK
     Route: 065

REACTIONS (18)
  - Irritability [Unknown]
  - Megakaryocytes increased [Recovering/Resolving]
  - Proteinuria [Recovered/Resolved]
  - Thrombotic microangiopathy [Recovering/Resolving]
  - Blood urea increased [Recovered/Resolved]
  - Reticulocyte percentage increased [Recovered/Resolved]
  - Pyrexia [Recovering/Resolving]
  - Headache [Unknown]
  - Platelet count decreased [Recovered/Resolved]
  - Haemolysis [Recovering/Resolving]
  - Agitation [Not Recovered/Not Resolved]
  - Thrombotic thrombocytopenic purpura [Recovering/Resolving]
  - Blood lactate dehydrogenase increased [Recovered/Resolved]
  - Microangiopathic haemolytic anaemia [Unknown]
  - Red blood cell abnormality [Recovered/Resolved]
  - Haemoglobin decreased [Recovered/Resolved]
  - Thrombocytopenia [Unknown]
  - Blood creatinine increased [Unknown]
